FAERS Safety Report 8617319 (Version 4)
Quarter: 2013Q1

REPORT INFORMATION
  Report Type: Spontaneous
  Country: US (occurrence: None)
  Receive Date: 20120601
  Receipt Date: 20130315
  Transmission Date: 20140127
  Serious: Yes (Hospitalization, Other)
  Sender: FDA-Public Use
  Company Number: ADR-2012-00933

PATIENT
  Sex: Female

DRUGS (2)
  1. LIORESAL [Suspect]
     Indication: MUSCLE SPASTICITY
     Dosage: 999.7 MCG/DAY
  2. LIORESAL [Suspect]
     Dosage: 999.7 MCG/DAY

REACTIONS (15)
  - Muscle spasticity [None]
  - Condition aggravated [None]
  - Fall [None]
  - Post procedural complication [None]
  - Device breakage [None]
  - Incision site complication [None]
  - Swelling [None]
  - Treatment noncompliance [None]
  - Device issue [None]
  - Muscle spasms [None]
  - Alcohol abuse [None]
  - Scar [None]
  - Device leakage [None]
  - Refusal of treatment by patient [None]
  - Incision site oedema [None]
